FAERS Safety Report 23986172 (Version 1)
Quarter: 2024Q2

REPORT INFORMATION
  Report Type: Spontaneous
  Country: US (occurrence: US)
  Receive Date: 20240618
  Receipt Date: 20240618
  Transmission Date: 20240716
  Serious: No
  Sender: FDA-Public Use
  Company Number: US-SLATERUN-2024SRSPO00083

PATIENT
  Age: 74 Year
  Sex: Female
  Weight: 160 kg

DRUGS (4)
  1. BUPROPION [Suspect]
     Active Substance: BUPROPION
     Indication: Depression
     Route: 048
     Dates: start: 20240502, end: 20240507
  2. SYNTHROID [Concomitant]
     Active Substance: LEVOTHYROXINE SODIUM
     Route: 065
  3. CYTOMEL [Concomitant]
     Active Substance: LIOTHYRONINE SODIUM
     Route: 065
  4. AMLODIPINE [Concomitant]
     Active Substance: AMLODIPINE BESYLATE
     Indication: Blood pressure measurement
     Route: 065

REACTIONS (3)
  - Thinking abnormal [Recovering/Resolving]
  - Headache [Recovering/Resolving]
  - Product substitution issue [Unknown]

NARRATIVE: CASE EVENT DATE: 20240502
